FAERS Safety Report 4823443-0 (Version None)
Quarter: 2005Q4

REPORT INFORMATION
  Report Type: 
  Country: None (occurrence: None)
  Receive Date: 20051107
  Receipt Date: 20051026
  Transmission Date: 20060501
  Serious: Yes (Hospitalization)
  Sender: FDA-Public Use
  Company Number: GXKR2005SK01881

PATIENT
  Age: 31 Year
  Sex: Female

DRUGS (2)
  1. RANITAL (NGX) (RANITIDINE HYDROCHLORIDE) TABLET [Suspect]
     Dosage: 1 TABLET, ORAL
     Route: 048
     Dates: start: 20050802, end: 20050803
  2. IBALGIN (IBUPROFEN) [Suspect]
     Indication: BACK PAIN
     Dosage: 400 MG, QD, ORAL
     Route: 048
     Dates: start: 20050802, end: 20050805

REACTIONS (5)
  - FACE OEDEMA [None]
  - FOOD POISONING [None]
  - PYREXIA [None]
  - RASH [None]
  - URTICARIA GENERALISED [None]
